FAERS Safety Report 17322932 (Version 3)
Quarter: 2020Q1

REPORT INFORMATION
  Report Type: Report from Study
  Country: CA (occurrence: CA)
  Receive Date: 20200127
  Receipt Date: 20200306
  Transmission Date: 20200409
  Serious: Yes (Other)
  Sender: FDA-Public Use
  Company Number: CA-ROCHE-2521131

PATIENT
  Age: 48 Year
  Sex: Male

DRUGS (4)
  1. OCREVUS [Suspect]
     Active Substance: OCRELIZUMAB
     Indication: RELAPSING-REMITTING MULTIPLE SCLEROSIS
     Dosage: 300 MG AT DAY 0 AND 14, THEN 600 MG EVERY 6 MONTH
     Route: 042
     Dates: start: 20200106
  2. LYRICA [Concomitant]
     Active Substance: PREGABALIN
  3. TYLENOL [Concomitant]
     Active Substance: ACETAMINOPHEN
     Dosage: AS NEEDED
     Route: 065
  4. BISOPROLOL [Concomitant]
     Active Substance: BISOPROLOL
     Indication: BLOOD PRESSURE MEASUREMENT
     Route: 065

REACTIONS (18)
  - Hyperhidrosis [Recovered/Resolved]
  - Gastrointestinal oedema [Unknown]
  - Herpes zoster [Unknown]
  - Vomiting [Unknown]
  - Infusion related reaction [Recovering/Resolving]
  - Abdominal rigidity [Unknown]
  - Euphoric mood [Recovered/Resolved]
  - Insomnia [Unknown]
  - Shock [Not Recovered/Not Resolved]
  - Retinitis pigmentosa [Unknown]
  - Muscle spasms [Unknown]
  - Pain [Unknown]
  - Back pain [Recovered/Resolved]
  - Abdominal pain [Not Recovered/Not Resolved]
  - Burning sensation [Unknown]
  - Sensory disturbance [Unknown]
  - Hypoaesthesia [Recovered/Resolved]
  - Nasopharyngitis [Not Recovered/Not Resolved]

NARRATIVE: CASE EVENT DATE: 20200106
